FAERS Safety Report 5280289-X (Version None)
Quarter: 2007Q1

REPORT INFORMATION
  Report Type: 
  Country: None (occurrence: None)
  Receive Date: 20070329
  Receipt Date: 20070322
  Transmission Date: 20070707
  Serious: Yes (Hospitalization)
  Sender: FDA-Public Use
  Company Number: JP-JPN-A200700450

PATIENT
  Age: 64 Year
  Sex: Female
  Weight: 48 kg

DRUGS (11)
  1. PAXIL [Suspect]
     Indication: DEPRESSION
     Dosage: 40MG PER DAY
     Route: 048
     Dates: start: 20061201, end: 20070201
  2. HIBERNA [Suspect]
     Indication: PARKINSONISM
     Dosage: 25MG TWICE PER DAY
     Route: 048
     Dates: start: 20070126, end: 20070129
  3. TRIPHEDINON [Suspect]
     Indication: PARKINSONISM
     Dosage: 2MG TWICE PER DAY
     Route: 048
     Dates: start: 20070129, end: 20070201
  4. CELESTONE [Suspect]
     Indication: ECZEMA
     Route: 048
     Dates: start: 20070125, end: 20070129
  5. LEXOTAN [Suspect]
     Indication: DEPRESSION
     Dosage: 2G TWICE PER DAY
     Route: 048
     Dates: start: 20061229, end: 20070126
  6. MIRADOL [Suspect]
     Indication: DEPRESSION
     Route: 048
     Dates: start: 20061215, end: 20070201
  7. DOGMATYL [Concomitant]
     Dosage: 100MG PER DAY
     Route: 065
  8. TRIHEXYPHENIDYL HYDROCHLORIDE [Concomitant]
     Dosage: 4MG PER DAY
     Route: 048
  9. ROHYPNOL [Concomitant]
     Indication: INSOMNIA
     Dosage: 1MG PER DAY
     Route: 048
     Dates: start: 20061229
  10. ARASENA-A [Concomitant]
     Indication: HERPES SIMPLEX
     Dosage: 1.5G PER DAY
     Route: 062
     Dates: start: 20070127, end: 20070130
  11. ANDERM [Concomitant]
     Indication: ECZEMA
     Dosage: 1.5G PER DAY
     Route: 062
     Dates: start: 20070125, end: 20070127

REACTIONS (9)
  - ABDOMINAL PAIN [None]
  - AGITATION [None]
  - ANXIETY [None]
  - HYPERREFLEXIA [None]
  - IRRITABILITY [None]
  - MUSCLE RIGIDITY [None]
  - PARKINSONISM [None]
  - PRURITUS [None]
  - SEROTONIN SYNDROME [None]
